FAERS Safety Report 25306892 (Version 2)
Quarter: 2025Q3

REPORT INFORMATION
  Report Type: Spontaneous
  Country: EU (occurrence: EU)
  Receive Date: 20250513
  Receipt Date: 20250711
  Transmission Date: 20251021
  Serious: Yes (Other)
  Sender: ALCON
  Company Number: EU-SANMEDPRD-2025-FRA-004947

PATIENT

DRUGS (2)
  1. LATANOPROST\NETARSUDIL MESYLATE [Suspect]
     Active Substance: LATANOPROST\NETARSUDIL MESYLATE
     Indication: Open angle glaucoma
     Route: 047
     Dates: start: 20250417
  2. TIMOLOL MALEATE [Concomitant]
     Active Substance: TIMOLOL MALEATE
     Indication: Product used for unknown indication
     Route: 065
     Dates: start: 20250417

REACTIONS (1)
  - Acute myopia [Unknown]
